FAERS Safety Report 10149747 (Version 2)
Quarter: 2014Q2

REPORT INFORMATION
  Report Type: Spontaneous
  Country: US (occurrence: US)
  Receive Date: 20140502
  Receipt Date: 20140529
  Transmission Date: 20141212
  Serious: No
  Sender: FDA-Public Use
  Company Number: US-009507513-1404USA015294

PATIENT
  Age: 21 Year
  Sex: Female

DRUGS (2)
  1. NEXPLANON [Suspect]
     Indication: CONTRACEPTION
     Dosage: 1 ROD FOR 3 YEARS
     Route: 059
     Dates: start: 20140224
  2. HYDROCODONE [Concomitant]
     Indication: PAIN MANAGEMENT
     Dosage: 5325

REACTIONS (3)
  - Personality change [Unknown]
  - Menorrhagia [Unknown]
  - Therapeutic response changed [Unknown]
